FAERS Safety Report 6816323-2 (Version None)
Quarter: 2010Q3

REPORT INFORMATION
  Report Type: 
  Country: None (occurrence: None)
  Receive Date: 20100705
  Receipt Date: 20100621
  Transmission Date: 20110219
  Serious: Yes (Other)
  Sender: FDA-Public Use
  Company Number: PHHY2009CA16648

PATIENT
  Sex: Male

DRUGS (3)
  1. SANDOSTATIN LAR [Suspect]
     Indication: CARCINOID SYNDROME
     Dosage: 40 MG, QMO
     Route: 030
     Dates: start: 20080117
  2. SANDOSTATIN LAR [Suspect]
     Dosage: 40 MG DAILY
     Route: 030
     Dates: start: 20090619, end: 20090619
  3. SANDOSTATIN LAR [Suspect]
     Dosage: 50 MG EVERY 4 WEEKS
     Route: 030

REACTIONS (6)
  - BLOOD GLUCOSE INCREASED [None]
  - BLOOD PRESSURE DIASTOLIC INCREASED [None]
  - BLOOD PRESSURE SYSTOLIC INCREASED [None]
  - FATIGUE [None]
  - GOUT [None]
  - INJECTION SITE PAIN [None]
